FAERS Safety Report 10366724 (Version 1)
Quarter: 2014Q3

REPORT INFORMATION
  Report Type: Spontaneous
  Country: FR (occurrence: FR)
  Receive Date: 20140806
  Receipt Date: 20140806
  Transmission Date: 20150326
  Serious: Yes (Hospitalization)
  Sender: FDA-Public Use
  Company Number: FR-FRI-1000069667

PATIENT
  Age: 77 Year
  Sex: Female

DRUGS (7)
  1. MILNACIPRAN [Suspect]
     Active Substance: MILNACIPRAN
     Indication: DEPRESSION
     Route: 048
     Dates: start: 20140613, end: 20140621
  2. COKENZEN [Suspect]
     Active Substance: CANDESARTAN CILEXETIL\HYDROCHLOROTHIAZIDE
     Route: 048
     Dates: end: 20140703
  3. PARACETAMOL [Concomitant]
     Active Substance: ACETAMINOPHEN
  4. CYMBALTA [Suspect]
     Active Substance: DULOXETINE HYDROCHLORIDE
     Indication: PAIN
     Route: 048
     Dates: start: 20140621, end: 20140703
  5. DICETEL [Concomitant]
     Active Substance: PINAVERIUM BROMIDE
  6. AMLOR [Concomitant]
     Active Substance: AMLODIPINE BESYLATE
  7. MILNACIPRAN [Suspect]
     Active Substance: MILNACIPRAN
     Indication: PAIN

REACTIONS (4)
  - Faecaloma [Unknown]
  - Inappropriate antidiuretic hormone secretion [Recovering/Resolving]
  - Urinary retention [Unknown]
  - Off label use [Recovered/Resolved]

NARRATIVE: CASE EVENT DATE: 201406
